FAERS Safety Report 16317624 (Version 13)
Quarter: 2021Q4

REPORT INFORMATION
  Report Type: Report from Study
  Country: NL (occurrence: NL)
  Receive Date: 20190516
  Receipt Date: 20211229
  Transmission Date: 20220303
  Serious: Yes (Hospitalization, Other)
  Sender: FDA-Public Use
  Company Number: NL-ABBVIE-19S-114-2783914-00

PATIENT
  Age: 66 Year
  Sex: Female
  Weight: 60 kg

DRUGS (8)
  1. CARBIDOPA\LEVODOPA [Suspect]
     Active Substance: CARBIDOPA\LEVODOPA
     Indication: Parkinson^s disease
     Dosage: MD: 3.0ML, CD: 2.7ML/H, ED: 2.5ML?16 HOUR ADMINISTRATION
     Route: 050
     Dates: start: 20171001
  2. CARBIDOPA\LEVODOPA [Suspect]
     Active Substance: CARBIDOPA\LEVODOPA
     Dosage: MD: 3.0 CD: 2.5 ED: 2.5
     Route: 050
  3. CARBIDOPA\LEVODOPA [Suspect]
     Active Substance: CARBIDOPA\LEVODOPA
     Dosage: MD: 3.0 ML, CD: 2.7 ML/H, ED: 2.5 ML
     Route: 050
  4. CARBIDOPA\LEVODOPA [Suspect]
     Active Substance: CARBIDOPA\LEVODOPA
     Dosage: MD: 3.0 ML; CD: 3.2 ML/H; ED: 2.5 ML
     Route: 050
  5. CARBIDOPA\LEVODOPA [Suspect]
     Active Substance: CARBIDOPA\LEVODOPA
     Dosage: MD: 3.5 ML; CD: 3.2 ML/H; ED: 2.5 ML
     Route: 050
     Dates: start: 20210622, end: 2021
  6. CARBIDOPA\LEVODOPA [Suspect]
     Active Substance: CARBIDOPA\LEVODOPA
     Dosage: MD 3.0 ML CD 3.5 ML/H ED 2.0 ML
     Route: 050
     Dates: start: 2021
  7. CARBIDOPA\LEVODOPA [Suspect]
     Active Substance: CARBIDOPA\LEVODOPA
     Dosage: CD: 3.4 ML/H, ED: 2.5 ML, ATF: 4.0 ML
     Route: 050
     Dates: start: 2021
  8. CARBOHYDRATES\FATTY ACIDS\MINERALS\PROTEIN\VITAMINS [Concomitant]
     Active Substance: CARBOHYDRATES\FATTY ACIDS\MINERALS\PROTEIN\VITAMINS
     Indication: Product used for unknown indication

REACTIONS (24)
  - Upper limb fracture [Recovered/Resolved]
  - Wrist fracture [Recovered/Resolved]
  - Feeling abnormal [Recovered/Resolved]
  - Device issue [Unknown]
  - Nocturia [Recovered/Resolved]
  - Mobility decreased [Not Recovered/Not Resolved]
  - Initial insomnia [Recovered/Resolved]
  - Pneumonia [Recovering/Resolving]
  - Gait disturbance [Not Recovered/Not Resolved]
  - Hyperhidrosis [Not Recovered/Not Resolved]
  - Fall [Not Recovered/Not Resolved]
  - Fatigue [Not Recovered/Not Resolved]
  - Freezing phenomenon [Recovered/Resolved]
  - Orthostatic hypotension [Not Recovered/Not Resolved]
  - Anxiety [Not Recovered/Not Resolved]
  - Muscle rigidity [Not Recovered/Not Resolved]
  - On and off phenomenon [Recovering/Resolving]
  - Dyskinesia [Recovered/Resolved]
  - Stoma site erythema [Recovered/Resolved]
  - Feeling abnormal [Not Recovered/Not Resolved]
  - Hyperkinesia [Recovered/Resolved]
  - Unevaluable event [Not Recovered/Not Resolved]
  - Therapeutic product effect incomplete [Unknown]
  - Malaise [Recovering/Resolving]

NARRATIVE: CASE EVENT DATE: 20190201
